FAERS Safety Report 5992835-9 (Version None)
Quarter: 2008Q4

REPORT INFORMATION
  Report Type: 
  Country: None (occurrence: None)
  Receive Date: 20081209
  Receipt Date: 20080821
  Transmission Date: 20090506
  Serious: Yes (Disabling)
  Sender: FDA-Public Use
  Company Number: 002#2#2008-00563

PATIENT
  Age: 67 Year
  Sex: Male
  Weight: 81.6475 kg

DRUGS (11)
  1. NEUPRO [Suspect]
     Indication: PARKINSON'S DISEASE
     Dosage: 2MG/24H,1 IN 1 D,TRANSDERMAL ; 4MG/24H,1 IN 1 D,TRANSDERMAL ; 2MG/24H,1 IN 1 D,TRANSDERMAL
     Route: 062
     Dates: start: 20070801, end: 20070901
  2. NEUPRO [Suspect]
     Indication: PARKINSON'S DISEASE
     Dosage: 2MG/24H,1 IN 1 D,TRANSDERMAL ; 4MG/24H,1 IN 1 D,TRANSDERMAL ; 2MG/24H,1 IN 1 D,TRANSDERMAL
     Route: 062
     Dates: start: 20070901, end: 20080501
  3. NEUPRO [Suspect]
     Indication: PARKINSON'S DISEASE
     Dosage: 2MG/24H,1 IN 1 D,TRANSDERMAL ; 4MG/24H,1 IN 1 D,TRANSDERMAL ; 2MG/24H,1 IN 1 D,TRANSDERMAL
     Route: 062
     Dates: start: 20080501, end: 20080501
  4. REQUIP [Suspect]
     Indication: DRUG USE FOR UNKNOWN INDICATION
     Dosage: 1MG,3 IN1 D
     Dates: start: 20080501
  5. CARBIDOPA AND LEVODOPA [Concomitant]
  6. ENTACAPONE [Concomitant]
  7. LISINOPRIL [Concomitant]
  8. AMANTADINE HCL [Concomitant]
  9. ARICEPT [Concomitant]
  10. ZOCOR [Concomitant]
  11. ASA BABY [Concomitant]

REACTIONS (7)
  - COGNITIVE DISORDER [None]
  - DYSPHAGIA [None]
  - HALLUCINATION [None]
  - NAUSEA [None]
  - PRODUCT QUALITY ISSUE [None]
  - SOMNOLENCE [None]
  - WEIGHT DECREASED [None]
